FAERS Safety Report 19691390 (Version 2)
Quarter: 2021Q3

REPORT INFORMATION
  Report Type: Spontaneous
  Country: US (occurrence: US)
  Receive Date: 20210812
  Receipt Date: 20210904
  Transmission Date: 20211014
  Serious: No
  Sender: FDA-Public Use
  Company Number: US-TEVA-2021-US-1941122

PATIENT
  Age: 69 Year
  Sex: Male
  Weight: 68.04 kg

DRUGS (5)
  1. XANAX [Concomitant]
     Active Substance: ALPRAZOLAM
     Indication: ADVERSE DRUG REACTION
     Dosage: 1MG ? 4 TABLETS DAILY
     Route: 065
     Dates: start: 2002
  2. ZOLPIDEM TARTRATE. [Suspect]
     Active Substance: ZOLPIDEM TARTRATE
     Indication: INSOMNIA
     Dosage: 10MG ONE TABLET NIGHTLY
     Route: 065
     Dates: start: 2002
  3. TRIAZOLAM GREENSTONE [Suspect]
     Active Substance: TRIAZOLAM
     Dosage: HE DOUBLED THE 0.25MG
     Route: 065
  4. ALPRAZOLAM. [Concomitant]
     Active Substance: ALPRAZOLAM
     Route: 065
  5. TRIAZOLAM GREENSTONE [Suspect]
     Active Substance: TRIAZOLAM
     Indication: INSOMNIA
     Dosage: ONE OR TWO TABLETS NIGHTLY
     Route: 065

REACTIONS (2)
  - Drug ineffective [Unknown]
  - Aphonia [Unknown]

NARRATIVE: CASE EVENT DATE: 2019
